FAERS Safety Report 15042792 (Version 7)
Quarter: 2020Q2

REPORT INFORMATION
  Report Type: Spontaneous
  Country: US (occurrence: US)
  Receive Date: 20180621
  Receipt Date: 20200501
  Transmission Date: 20200713
  Serious: Yes (Other)
  Sender: FDA-Public Use
  Company Number: US-PFIZER INC-2018249401

PATIENT
  Age: 54 Year
  Sex: Female

DRUGS (1)
  1. XELJANZ XR [Suspect]
     Active Substance: TOFACITINIB CITRATE
     Indication: RHEUMATOID ARTHRITIS
     Dosage: 11 MG, 1X/DAY
     Route: 048
     Dates: start: 201807

REACTIONS (6)
  - Hepatitis C [Unknown]
  - Pain in extremity [Unknown]
  - Depressed mood [Unknown]
  - Drug ineffective [Unknown]
  - Arthralgia [Unknown]
  - Condition aggravated [Unknown]
